FAERS Safety Report 5248662-3 (Version None)
Quarter: 2007Q1

REPORT INFORMATION
  Report Type: 
  Country: None (occurrence: None)
  Receive Date: 20070227
  Receipt Date: 20070227
  Transmission Date: 20070707
  Serious: No
  Sender: FDA-Public Use
  Company Number: None

PATIENT
  Sex: Male
  Weight: 110.2241 kg

DRUGS (1)
  1. SIMVASTATIN [Suspect]
     Indication: HYPERLIPIDAEMIA
     Dosage: 10 MG 1 QD PO
     Route: 048
     Dates: start: 20061107

REACTIONS (2)
  - PHARMACEUTICAL PRODUCT COMPLAINT [None]
  - RECTAL HAEMORRHAGE [None]
